FAERS Safety Report 16139348 (Version 1)
Quarter: 2019Q1

REPORT INFORMATION
  Report Type: Spontaneous
  Country: US (occurrence: US)
  Receive Date: 20190328
  Receipt Date: 20190328
  Transmission Date: 20190418
  Serious: No
  Sender: FDA-Public Use
  Company Number: None

PATIENT

DRUGS (1)
  1. R.H. NATURAL PRODUCTS KRATOM [Suspect]
     Active Substance: HERBALS\MITRAGYNINE
     Dates: start: 20190322, end: 20190322

REACTIONS (5)
  - Drug screen positive [None]
  - Tremor [None]
  - Vomiting [None]
  - Nausea [None]
  - Abdominal pain [None]

NARRATIVE: CASE EVENT DATE: 20190323
